FAERS Safety Report 4269393-2 (Version None)
Quarter: 2004Q1

REPORT INFORMATION
  Report Type: 
  Country: None (occurrence: None)
  Receive Date: 20040113
  Receipt Date: 20040108
  Transmission Date: 20041129
  Serious: Yes (Disabling)
  Sender: FDA-Public Use
  Company Number: WAES 0401USA00602

PATIENT
  Age: 68 Year
  Sex: Female

DRUGS (2)
  1. FOSAMAX [Suspect]
     Route: 048
     Dates: start: 20031201, end: 20040101
  2. SYNTHROID [Concomitant]

REACTIONS (2)
  - CHOKING [None]
  - PHARYNGOLARYNGEAL PAIN [None]
